FAERS Safety Report 6667297-9 (Version None)
Quarter: 2010Q2

REPORT INFORMATION
  Report Type: 
  Country: None (occurrence: None)
  Receive Date: 20100401
  Receipt Date: 20100326
  Transmission Date: 20101027
  Serious: Yes (Other)
  Sender: FDA-Public Use
  Company Number: 1000012724

PATIENT
  Age: 52 Year
  Sex: Female

DRUGS (1)
  1. LEVOTHROID [Suspect]
     Indication: HYPOTHYROIDISM
     Dosage: 100 MCG (100 MCG, 1 IN 1 D), ORAL
     Route: 048
     Dates: start: 19940101

REACTIONS (4)
  - ABDOMINAL PAIN [None]
  - BLOOD CHOLESTEROL INCREASED [None]
  - CHOLELITHIASIS [None]
  - HEPATIC ENZYME INCREASED [None]
